FAERS Safety Report 4283989-3 (Version None)
Quarter: 2004Q1

REPORT INFORMATION
  Report Type: 
  Country: None (occurrence: None)
  Receive Date: 20040130
  Receipt Date: 20040108
  Transmission Date: 20041129
  Serious: Yes (Other)
  Sender: FDA-Public Use
  Company Number: US_040199823

PATIENT
  Age: 11 Year
  Sex: Male
  Weight: 23 kg

DRUGS (1)
  1. HUMATROPE [Suspect]
     Dosage: 1.2 MG/DAY
     Dates: start: 20030801

REACTIONS (2)
  - CONVULSION [None]
  - PANIC ATTACK [None]
